FAERS Safety Report 8814515 (Version 2)
Quarter: 2012Q4

REPORT INFORMATION
  Report Type: Spontaneous
  Country: US (occurrence: None)
  Receive Date: 20120926
  Receipt Date: 20121001
  Transmission Date: 20130627
  Serious: Yes (Disabling)
  Sender: FDA-Public Use
  Company Number: 2012AP003099

PATIENT
  Age: 60 Year
  Sex: Female

DRUGS (3)
  1. LAMOTRIGINE [Suspect]
     Indication: MAJOR DEPRESSION
  2. LAMOTRIGINE [Suspect]
     Indication: OFF LABEL USE
  3. ARIPIPRAZOLE [Suspect]
     Indication: MAJOR DEPRESSION

REACTIONS (1)
  - Intention tremor [None]
